FAERS Safety Report 19143169 (Version 9)
Quarter: 2021Q4

REPORT INFORMATION
  Report Type: Report from Study
  Country: US (occurrence: US)
  Receive Date: 20210415
  Receipt Date: 20211112
  Transmission Date: 20220303
  Serious: Yes (Hospitalization, Other)
  Sender: FDA-Public Use
  Company Number: US-SEATTLE GENETICS-2021SGN02147

PATIENT
  Age: 66 Year
  Sex: Female
  Weight: 57.4 kg

DRUGS (22)
  1. BRENTUXIMAB VEDOTIN [Suspect]
     Active Substance: BRENTUXIMAB VEDOTIN
     Indication: Hodgkin^s disease
     Dosage: 1.2 MG/KG, QCYCLE
     Route: 042
     Dates: start: 20210121, end: 20210318
  2. DOXORUBICIN [Suspect]
     Active Substance: DOXORUBICIN
     Indication: Hodgkin^s disease
     Dosage: 25 MG/M2, QCYCLE
     Route: 042
     Dates: start: 20210121, end: 20210401
  3. DACARBAZINE [Suspect]
     Active Substance: DACARBAZINE
     Indication: Hodgkin^s disease
     Dosage: 375 MG/M2, QCYCLE
     Route: 042
     Dates: start: 20210121, end: 20210401
  4. NIVOLUMAB [Suspect]
     Active Substance: NIVOLUMAB
     Indication: Hodgkin^s disease
     Dosage: 240 MG, QCYCLE
     Route: 042
     Dates: start: 20210121, end: 20210318
  5. PEGFILGRASTIM [Concomitant]
     Active Substance: PEGFILGRASTIM
     Indication: Hodgkin^s disease
     Dosage: 6 MG, QCYCLE
     Route: 058
     Dates: start: 20210122, end: 20210402
  6. MELATONIN [Concomitant]
     Active Substance: MELATONIN
     Indication: Insomnia
     Dosage: 5 MG, PRN
     Route: 048
     Dates: start: 20201001
  7. LEVOTHYROXINE [Concomitant]
     Active Substance: LEVOTHYROXINE
     Indication: Hypothyroidism
     Dosage: 25 UNK
     Route: 048
     Dates: start: 20201001
  8. CITALOPRAM [Concomitant]
     Active Substance: CITALOPRAM HYDROBROMIDE
     Indication: Depression
     Dosage: 20 MG, QD
     Route: 048
     Dates: start: 20210108
  9. DOCUSATE SODIUM [Concomitant]
     Active Substance: DOCUSATE SODIUM
     Indication: Constipation
     Dosage: 100 MG, PRN
     Route: 048
     Dates: start: 20201215
  10. LIDOCAINE\PRILOCAINE [Concomitant]
     Active Substance: LIDOCAINE\PRILOCAINE
     Indication: Central venous catheterisation
     Dosage: 2.5 %, PRN
     Route: 061
     Dates: start: 20210112
  11. ACETAMINOPHEN [Concomitant]
     Active Substance: ACETAMINOPHEN
     Indication: Arthralgia
     Dosage: 325 MG, PRN
     Route: 048
     Dates: start: 20171001
  12. ACETAMINOPHEN [Concomitant]
     Active Substance: ACETAMINOPHEN
     Indication: Premedication
     Dosage: 650 MG, Q2WEEKS
     Route: 048
     Dates: start: 20210121
  13. HYDROCORTISONE [Concomitant]
     Active Substance: HYDROCORTISONE
     Indication: Premedication
     Dosage: 50 MG, Q2WEEKS
     Route: 042
     Dates: start: 20210121
  14. HYDROCORTISONE [Concomitant]
     Active Substance: HYDROCORTISONE
     Indication: Rash
     Dosage: 1 %, PRN
     Route: 061
     Dates: start: 20210326, end: 20210331
  15. DEXAMETHASONE [Concomitant]
     Active Substance: DEXAMETHASONE
     Indication: Premedication
     Dosage: 12 MG, Q2WEEKS
     Route: 042
     Dates: start: 20210121
  16. DIPHENHYDRAMINE [Concomitant]
     Active Substance: DIPHENHYDRAMINE
     Indication: Premedication
     Dosage: 25 MG, Q2WEEKS
     Route: 042
     Dates: start: 20210121
  17. DIPHENHYDRAMINE [Concomitant]
     Active Substance: DIPHENHYDRAMINE
     Indication: Rash
     Dosage: 25 MG, PRN
     Route: 048
     Dates: start: 20210326
  18. PALONOSETRON [Concomitant]
     Active Substance: PALONOSETRON
     Indication: Premedication
     Dosage: 0.25 MG, Q2WEEKS
     Route: 042
     Dates: start: 20210121
  19. FAMOTIDINE [Concomitant]
     Active Substance: FAMOTIDINE
     Indication: Premedication
     Dosage: 20 MG, Q2WEEKS
     Route: 042
     Dates: start: 20210121
  20. ONDANSETRON [Concomitant]
     Active Substance: ONDANSETRON
     Indication: Nausea
     Dosage: 8 MG, PRN
     Route: 048
     Dates: start: 20210124
  21. PROCHLORPERAZINE [Concomitant]
     Active Substance: PROCHLORPERAZINE
     Indication: Nausea
     Dosage: 10 MG, PRN
     Route: 048
     Dates: start: 20210318
  22. METFORMIN [Concomitant]
     Active Substance: METFORMIN HYDROCHLORIDE
     Indication: Hyperglycaemia
     Dosage: 500 MG, BID
     Route: 048
     Dates: start: 20210401

REACTIONS (4)
  - Hyponatraemia [Recovered/Resolved]
  - Diabetic ketoacidosis [Recovered/Resolved with Sequelae]
  - Dehydration [Recovered/Resolved]
  - Type 1 diabetes mellitus [Recovered/Resolved with Sequelae]

NARRATIVE: CASE EVENT DATE: 20210406
